FAERS Safety Report 8540187-2 (Version None)
Quarter: 2012Q3

REPORT INFORMATION
  Report Type: 
  Country: None (occurrence: None)
  Receive Date: 20120726
  Receipt Date: 20120717
  Transmission Date: 20120928
  Serious: Yes (Other)
  Sender: FDA-Public Use
  Company Number: AR-ROCHE-1090994

PATIENT
  Sex: Female

DRUGS (2)
  1. LUCENTIS [Suspect]
     Indication: RETINAL VASCULAR THROMBOSIS
     Route: 050
     Dates: start: 20100101
  2. LUCENTIS [Suspect]
     Route: 050
     Dates: start: 20110101

REACTIONS (4)
  - INTRAOCULAR PRESSURE INCREASED [None]
  - VISION BLURRED [None]
  - NO THERAPEUTIC RESPONSE [None]
  - VISUAL IMPAIRMENT [None]
